FAERS Safety Report 5981864-7 (Version None)
Quarter: 2008Q4

REPORT INFORMATION
  Report Type: 
  Country: None (occurrence: None)
  Receive Date: 20081202
  Receipt Date: 20081121
  Transmission Date: 20090506
  Serious: Yes (Other)
  Sender: FDA-Public Use
  Company Number: CHPA2008US20555

PATIENT
  Sex: Male

DRUGS (1)
  1. MAALOX MS TOTAL STOMACH RELIEF (NCH) (BISMUTH SUBSALICYLATE) SUSPENSIO [Suspect]
     Indication: ANTACID THERAPY
     Dosage: ORAL
     Route: 048
     Dates: start: 20081121, end: 20081121

REACTIONS (2)
  - BLOOD GLUCOSE DECREASED [None]
  - INCORRECT DOSE ADMINISTERED [None]
